FAERS Safety Report 9468399 (Version 1)
Quarter: 2013Q3

REPORT INFORMATION
  Report Type: Spontaneous
  Country: ES (occurrence: ES)
  Receive Date: 20130821
  Receipt Date: 20130821
  Transmission Date: 20140515
  Serious: Yes (Other)
  Sender: FDA-Public Use
  Company Number: PHHY2013ES088280

PATIENT
  Age: 11 Year
  Sex: Male

DRUGS (2)
  1. RISPERIDONE [Suspect]
     Dosage: 1.5 MG, UNK
  2. ARIPIPRAZOLE [Suspect]
     Dosage: 2 MG, UNK

REACTIONS (4)
  - Oculogyric crisis [Unknown]
  - Gaze palsy [Unknown]
  - Eye disorder [Unknown]
  - Posture abnormal [Unknown]
